FAERS Safety Report 5048006-6 (Version None)
Quarter: 2006Q2

REPORT INFORMATION
  Report Type: 
  Country: None (occurrence: None)
  Receive Date: 20060601
  Receipt Date: 20060319
  Transmission Date: 20061013
  Serious: No
  Sender: FDA-Public Use
  Company Number: 2006PV010454

PATIENT
  Age: 75 Year
  Sex: Female
  Weight: 104.3273 kg

DRUGS (11)
  1. BYETTA [Suspect]
     Indication: DIABETES MELLITUS
     Dosage: 5 MCG; BID; SC
     Route: 058
     Dates: start: 20060315
  2. AMARYL [Concomitant]
  3. PREMARIN [Concomitant]
  4. LISINOPRIL [Concomitant]
  5. CYTOMEL [Concomitant]
  6. OXYCODONE HCL [Concomitant]
  7. GABAPENTIN [Concomitant]
  8. MUSCLE RELAXER [Concomitant]
  9. VITAMIN B-12 [Concomitant]
  10. LANTUS [Concomitant]
  11. ASPIRIN [Concomitant]

REACTIONS (6)
  - FATIGUE [None]
  - INJECTION SITE ERYTHEMA [None]
  - INJECTION SITE HAEMORRHAGE [None]
  - INJECTION SITE PAIN [None]
  - SLUGGISHNESS [None]
  - SOMNOLENCE [None]
